FAERS Safety Report 25814240 (Version 1)
Quarter: 2025Q3

REPORT INFORMATION
  Report Type: Report from Study
  Country: EU (occurrence: EU)
  Receive Date: 20250917
  Receipt Date: 20250917
  Transmission Date: 20251020
  Serious: Yes (Death)
  Sender: PFIZER
  Company Number: EU-ROCHE-10000134821

PATIENT
  Age: 64 Year
  Sex: Female
  Weight: 69 kg

DRUGS (15)
  1. CARBOPLATIN [Suspect]
     Active Substance: CARBOPLATIN
     Indication: Small cell lung cancer metastatic
     Route: 065
     Dates: start: 20220622
  2. CARBOPLATIN [Suspect]
     Active Substance: CARBOPLATIN
     Indication: Small cell lung cancer extensive stage
     Route: 065
     Dates: start: 20231018, end: 20240131
  3. ATEZOLIZUMAB [Suspect]
     Active Substance: ATEZOLIZUMAB
     Indication: Small cell lung cancer metastatic
     Route: 042
     Dates: start: 20220601
  4. ATEZOLIZUMAB [Suspect]
     Active Substance: ATEZOLIZUMAB
     Indication: Small cell lung cancer extensive stage
  5. ETOPOSIDE [Suspect]
     Active Substance: ETOPOSIDE
     Indication: Small cell lung cancer metastatic
     Route: 042
     Dates: start: 20220601
  6. JARDIANCE [Concomitant]
     Active Substance: EMPAGLIFLOZIN
     Dosage: UNK, 1X/DAY
  7. METFORMIN [Concomitant]
     Active Substance: METFORMIN HYDROCHLORIDE
     Dosage: UNK, 2X/DAY
  8. ALLOPURINOL [Concomitant]
     Active Substance: ALLOPURINOL
     Dosage: UNK, 1X/DAY
     Dates: start: 20220530
  9. ONDANSETRON [Concomitant]
     Active Substance: ONDANSETRON
     Indication: Prophylaxis
     Dates: start: 20220530
  10. METOCLOPRAMIDE [Concomitant]
     Active Substance: METOCLOPRAMIDE
     Dates: start: 20220530
  11. ENOXAPARIN [Concomitant]
     Active Substance: ENOXAPARIN
     Dosage: UNK, 1X/DAY
     Dates: start: 20220530
  12. BILASTINE [Concomitant]
     Active Substance: BILASTINE
     Dosage: UNK, 1X/DAY
     Dates: start: 20231006, end: 20231018
  13. MOMETASONE FUROATE [Concomitant]
     Active Substance: MOMETASONE FUROATE
     Dosage: UNK, 2X/DAY
     Dates: start: 20231006, end: 20231018
  14. DEXAMETHASONE [Concomitant]
     Active Substance: DEXAMETHASONE
     Dates: start: 20231018
  15. PERINDOPRIL [Concomitant]
     Active Substance: PERINDOPRIL
     Indication: Hypertension
     Dosage: UNK, 1X/DAY

REACTIONS (2)
  - Death [Fatal]
  - Dyspnoea [Not Recovered/Not Resolved]

NARRATIVE: CASE EVENT DATE: 20231018
